FAERS Safety Report 14153241 (Version 5)
Quarter: 2020Q4

REPORT INFORMATION
  Report Type: Report from Study
  Country: HK (occurrence: HK)
  Receive Date: 20171102
  Receipt Date: 20201008
  Transmission Date: 20210113
  Serious: Yes (Hospitalization, Other)
  Sender: FDA-Public Use
  Company Number: PHHY2017HK151272

PATIENT
  Age: 62 Year
  Sex: Male
  Weight: 56 kg

DRUGS (45)
  1. PREDNISOLONE. [Concomitant]
     Active Substance: PREDNISOLONE
     Dosage: 10 MG, QD
     Route: 048
     Dates: start: 20171013, end: 20171104
  2. CYCLOSPORIN A [Concomitant]
     Active Substance: CYCLOSPORINE
     Dosage: 75 MG, BID
     Route: 048
     Dates: start: 20171011, end: 20171031
  3. AUGMENTIN [Concomitant]
     Active Substance: AMOXICILLIN\CLAVULANATE POTASSIUM
     Indication: COLITIS
     Dosage: 1200 MG, TID
     Route: 048
     Dates: start: 20171129, end: 20171201
  4. PREDNISOLONE. [Concomitant]
     Active Substance: PREDNISOLONE
     Dosage: 7.5 MG, QD
     Route: 048
     Dates: start: 20170603, end: 20170703
  5. ADALAT [Concomitant]
     Active Substance: NIFEDIPINE
     Indication: PRODUCT USED FOR UNKNOWN INDICATION
     Dosage: UNK
     Route: 065
  6. INSULIN ISOPHANE HUMAN SEMISYNTHETIC [Concomitant]
     Active Substance: INSULIN HUMAN
     Dosage: 10 U, QD (100U/ML 3ML)
     Route: 058
     Dates: start: 20171017, end: 20171017
  7. REVOLADE [Suspect]
     Active Substance: ELTROMBOPAG
     Dosage: 25 MG, QD
     Route: 048
     Dates: start: 20171127, end: 20171221
  8. PREDNISOLONE. [Concomitant]
     Active Substance: PREDNISOLONE
     Dosage: 15 MG, QD
     Route: 048
  9. PREDNISOLONE. [Concomitant]
     Active Substance: PREDNISOLONE
     Dosage: 7.5 MG, QD
     Route: 048
     Dates: start: 20171012, end: 20171012
  10. PREDNISOLONE. [Concomitant]
     Active Substance: PREDNISOLONE
     Dosage: 7.5 MG, QD
     Route: 048
     Dates: start: 20180119, end: 20180426
  11. CYCLOSPORIN A [Concomitant]
     Active Substance: CYCLOSPORINE
     Indication: IMMUNE THROMBOCYTOPENIA
     Dosage: 75 MG, BID FOR 4 WEEK (S)
     Route: 048
  12. CYCLOSPORIN A [Concomitant]
     Active Substance: CYCLOSPORINE
     Dosage: 25 MG, BID
     Route: 048
     Dates: start: 20180511
  13. METFORMIN [Concomitant]
     Active Substance: METFORMIN HYDROCHLORIDE
     Indication: DIABETES MELLITUS
     Dosage: 500 MG, BID
     Route: 048
     Dates: start: 20161122
  14. REVOLADE [Suspect]
     Active Substance: ELTROMBOPAG
     Dosage: 25 MG, EVERY TUE, WED,FRI, SAT, SUN
     Route: 048
     Dates: start: 20171222
  15. LINAGLIPTIN [Concomitant]
     Active Substance: LINAGLIPTIN
     Indication: DIABETES MELLITUS
     Dosage: 5 MG, QD FOR 4 WEEKS
     Route: 048
     Dates: start: 20171014, end: 20171107
  16. PREDNISOLONE. [Concomitant]
     Active Substance: PREDNISOLONE
     Dosage: 10 MG, QD
     Route: 048
     Dates: start: 20180105, end: 20180118
  17. PREDNISOLONE. [Concomitant]
     Active Substance: PREDNISOLONE
     Dosage: 5 MG, QD
     Route: 048
     Dates: start: 20180427
  18. ATENOLOL. [Concomitant]
     Active Substance: ATENOLOL
     Indication: HYPERTENSION
     Dosage: 50 MG, QD FOR 4 WEEK (S)
     Route: 048
     Dates: start: 20150811
  19. PROTAPHANE HM [Concomitant]
     Indication: PRODUCT USED FOR UNKNOWN INDICATION
     Dosage: 100 U/ML, 3 ML (SC BOLUS 16 UNIT BEFR BREAKFAST AND SC BOLUS 4 UNITS BEFORE DINNER TOTAL FOR 4 WEEKS
     Route: 058
  20. METRONIDAZOLE. [Concomitant]
     Active Substance: METRONIDAZOLE
     Indication: COLITIS
     Dosage: 500 MG, TID
     Route: 048
     Dates: start: 20171130, end: 20171201
  21. REVOLADE [Suspect]
     Active Substance: ELTROMBOPAG
     Indication: IMMUNE THROMBOCYTOPENIA
     Dosage: 25 MG, QD
     Route: 048
     Dates: start: 20170606, end: 20170831
  22. REVOLADE [Suspect]
     Active Substance: ELTROMBOPAG
     Dosage: 50 MG, QD
     Route: 048
     Dates: start: 20170901, end: 20171011
  23. PREDNISOLONE. [Concomitant]
     Active Substance: PREDNISOLONE
     Dosage: 5 MG, QD
     Route: 048
     Dates: start: 20170704, end: 20170914
  24. PREDNISOLONE. [Concomitant]
     Active Substance: PREDNISOLONE
     Dosage: 2.5 MG, QD
     Route: 048
     Dates: start: 20171012, end: 20171012
  25. PREDNISOLONE. [Concomitant]
     Active Substance: PREDNISOLONE
     Dosage: 12.5 MG, QD
     Route: 048
     Dates: start: 20171215, end: 20180104
  26. CYCLOSPORIN A [Concomitant]
     Active Substance: CYCLOSPORINE
     Dosage: 50 MG, BID
     Route: 048
     Dates: start: 20170620, end: 20171010
  27. CYCLOSPORIN A [Concomitant]
     Active Substance: CYCLOSPORINE
     Dosage: 50 MG, BID
     Route: 048
     Dates: start: 20171127, end: 20180510
  28. VANCOMYCIN [Concomitant]
     Active Substance: VANCOMYCIN
     Indication: COLITIS
     Dosage: 125 MG, QID
     Route: 048
     Dates: start: 20171201, end: 20171211
  29. INSULIN ISOPHANE HUMAN SEMISYNTHETIC [Concomitant]
     Active Substance: INSULIN HUMAN
     Dosage: 18 U, QD (100U/ML 3ML)
     Route: 058
     Dates: start: 20180317, end: 20180426
  30. PREDNISOLONE. [Concomitant]
     Active Substance: PREDNISOLONE
     Dosage: 7.5 MG, QD
     Route: 048
     Dates: start: 20170915, end: 20171011
  31. CYCLOSPORIN A [Concomitant]
     Active Substance: CYCLOSPORINE
     Dosage: 100 MG, BID
     Route: 048
     Dates: start: 20171101, end: 20171127
  32. METFORMIN HCL [Concomitant]
     Active Substance: METFORMIN HYDROCHLORIDE
     Indication: PRODUCT USED FOR UNKNOWN INDICATION
     Dosage: 1000 MG, BID FOR 4 WEEK (S)
     Route: 065
  33. INSULIN ISOPHANE HUMAN SEMISYNTHETIC [Concomitant]
     Active Substance: INSULIN HUMAN
     Dosage: 20 U, QD (100U/ML 3ML)
     Route: 058
     Dates: start: 20171018, end: 20180317
  34. INSULIN ISOPHANE HUMAN SEMISYNTHETIC [Concomitant]
     Active Substance: INSULIN HUMAN
     Dosage: 16 U, QD (100U/ML 3ML)
     Route: 058
     Dates: start: 20180427
  35. MECOBALAMIN [Concomitant]
     Active Substance: METHYLCOBALAMIN
     Indication: PRODUCT USED FOR UNKNOWN INDICATION
     Dosage: 500 UG TDS FOR 4 WEEK (S)
     Route: 065
  36. DEQUADIN [Concomitant]
     Indication: PRODUCT USED FOR UNKNOWN INDICATION
     Dosage: 250 UG, PRN (100 PERCENT) FOR 1 WEEK (S)
     Route: 048
  37. PREDNISOLONE. [Concomitant]
     Active Substance: PREDNISOLONE
     Indication: IMMUNE THROMBOCYTOPENIA
     Dosage: 10 MG, QD (FOR  4 WEEK (S))
     Route: 048
     Dates: start: 20170620
  38. AMLODIPINE BESYLATE. [Concomitant]
     Active Substance: AMLODIPINE BESYLATE
     Indication: PRODUCT USED FOR UNKNOWN INDICATION
     Dosage: UNK
     Route: 065
  39. ACERTIL [Concomitant]
     Active Substance: PERINDOPRIL
     Indication: PRODUCT USED FOR UNKNOWN INDICATION
     Dosage: UNK
     Route: 065
  40. INSULIN ISOPHANE HUMAN SEMISYNTHETIC [Concomitant]
     Active Substance: INSULIN HUMAN
     Indication: DIABETES MELLITUS
     Dosage: 22 U, QD
     Route: 058
     Dates: start: 20170207
  41. INSULIN ISOPHANE HUMAN SEMISYNTHETIC [Concomitant]
     Active Substance: INSULIN HUMAN
     Dosage: 28 U, QD (100U/ML 3ML)
     Route: 058
     Dates: start: 20171011, end: 20171015
  42. PREDNISOLONE. [Concomitant]
     Active Substance: PREDNISOLONE
     Dosage: 15 MG, QD
     Route: 048
     Dates: start: 20171105, end: 20171213
  43. INSULIN ISOPHANE HUMAN SEMISYNTHETIC [Concomitant]
     Active Substance: INSULIN HUMAN
     Dosage: 22 U, QD (100U/ML 3ML)
     Route: 058
     Dates: start: 20170620, end: 20171011
  44. INSULIN ISOPHANE HUMAN SEMISYNTHETIC [Concomitant]
     Active Substance: INSULIN HUMAN
     Dosage: 22 U, QD (100U/ML 3ML)
     Route: 058
     Dates: start: 20171015, end: 20171016
  45. AUGMENTIN [Concomitant]
     Active Substance: AMOXICILLIN\CLAVULANATE POTASSIUM
     Indication: PYREXIA
     Dosage: 1000 MG, BID
     Route: 048
     Dates: start: 20171011, end: 20171016

REACTIONS (23)
  - Blood alkaline phosphatase decreased [Unknown]
  - Protein total decreased [Unknown]
  - Blood urea increased [Unknown]
  - Vitamin B12 decreased [Unknown]
  - Rectal haemorrhage [Unknown]
  - Blood sodium decreased [Unknown]
  - Haematocrit decreased [Unknown]
  - Blood albumin decreased [Unknown]
  - Systemic lupus erythematosus [Not Recovered/Not Resolved]
  - Neutrophil count increased [Unknown]
  - Mean platelet volume increased [Unknown]
  - Lymphocyte count decreased [Unknown]
  - Oedema peripheral [Unknown]
  - Oedema [Unknown]
  - Tenderness [Recovering/Resolving]
  - Haemoglobin decreased [Unknown]
  - White blood cell count increased [Unknown]
  - Hyperkalaemia [Recovered/Resolved]
  - Red blood cell count decreased [Unknown]
  - Eosinophil count decreased [Unknown]
  - Dyspnoea [Unknown]
  - Clostridium difficile colitis [Recovered/Resolved]
  - Blood lactate dehydrogenase increased [Unknown]

NARRATIVE: CASE EVENT DATE: 20170907
